FAERS Safety Report 14868864 (Version 2)
Quarter: 2018Q2

REPORT INFORMATION
  Report Type: Spontaneous
  Country: KR (occurrence: KR)
  Receive Date: 20180509
  Receipt Date: 20180518
  Transmission Date: 20180711
  Serious: Yes (Death, Other)
  Sender: FDA-Public Use
  Company Number: KR-009507513-1805KOR002153

PATIENT
  Age: 32 Year
  Sex: Male

DRUGS (1)
  1. KEYTRUDA [Suspect]
     Active Substance: PEMBROLIZUMAB
     Dosage: 2 MG/KG, UNK
     Dates: start: 20180307

REACTIONS (8)
  - Pyrexia [Unknown]
  - Headache [Unknown]
  - Somnolence [Unknown]
  - Liver function test increased [Unknown]
  - Myalgia [Unknown]
  - Death [Fatal]
  - Nausea [Unknown]
  - Vomiting [Unknown]

NARRATIVE: CASE EVENT DATE: 2018
